FAERS Safety Report 9841432 (Version 1)
Quarter: 2013Q4

REPORT INFORMATION
  Report Type: Spontaneous
  Country: US (occurrence: None)
  Receive Date: 20131219
  Receipt Date: 20131219
  Transmission Date: 20140711
  Serious: Yes (Death)
  Sender: FDA-Public Use
  Company Number: 163-20785-12103630

PATIENT
  Age: 66 Year
  Sex: Female

DRUGS (14)
  1. THALOMID [Suspect]
     Indication: PLASMA CELL MYELOMA
     Dosage: BEDTIME
     Route: 048
     Dates: start: 20120620
  2. ACIDOPHILUS [Concomitant]
  3. ACYCLOVIR [Concomitant]
  4. CALCIUM +D [Concomitant]
  5. FEMHRT [Concomitant]
  6. FERROUS GLUCONATE [Concomitant]
  7. MAGNESIUM [Concomitant]
  8. MISOPROSTOL [Concomitant]
  9. MULTIVITAMINS [Concomitant]
  10. PANTOPRAZOLE [Concomitant]
  11. SALMON OIL [Concomitant]
  12. VITAMIN A [Concomitant]
  13. VITAMIN B12 [Concomitant]
  14. VITAMIN D3 [Concomitant]

REACTIONS (1)
  - Death [None]
